FAERS Safety Report 17447148 (Version 37)
Quarter: 2022Q3

REPORT INFORMATION
  Report Type: Spontaneous
  Country: GB (occurrence: GB)
  Receive Date: 20200221
  Receipt Date: 20220914
  Transmission Date: 20221026
  Serious: Yes (Hospitalization, Other)
  Sender: FDA-Public Use
  Company Number: GB-002147023-NVSC2019GB072056

PATIENT
  Age: 7 Year
  Sex: Male

DRUGS (92)
  1. DUTASTERIDE [Interacting]
     Active Substance: DUTASTERIDE
     Indication: Product used for unknown indication
     Dosage: 500 MICROGRAM, QD,
     Route: 065
  2. DUTASTERIDE [Interacting]
     Active Substance: DUTASTERIDE
     Dosage: UNK
     Route: 065
  3. DUTASTERIDE [Interacting]
     Active Substance: DUTASTERIDE
     Dosage: 500 MILLIGRAM, QD
     Route: 065
  4. DUTASTERIDE [Interacting]
     Active Substance: DUTASTERIDE
     Dosage: 500 GRAM, QD
     Route: 065
  5. DUTASTERIDE [Interacting]
     Active Substance: DUTASTERIDE
     Dosage: 500 GRAM, QD
     Route: 065
  6. DUTASTERIDE [Interacting]
     Active Substance: DUTASTERIDE
     Dosage: 500 MICROGRAM, QD, 500 UG, QD
     Route: 065
  7. DUTASTERIDE [Interacting]
     Active Substance: DUTASTERIDE
     Dosage: 500 MICROGRAM, QD, 500 MICROGRAM, ONCE A DAY
     Route: 065
  8. DUTASTERIDE [Interacting]
     Active Substance: DUTASTERIDE
     Dosage: 500 MICROGRAM, QD, STRENGTH: 500 MCG
     Route: 065
  9. TRAMADOL [Interacting]
     Active Substance: TRAMADOL
     Indication: Product used for unknown indication
     Dosage: UNK
     Route: 065
  10. TRAMADOL [Interacting]
     Active Substance: TRAMADOL
     Dosage: 50 MILLIGRAM, QD
     Route: 065
  11. TRAMADOL [Interacting]
     Active Substance: TRAMADOL
     Dosage: 100 MILLIGRAM,
     Route: 065
  12. TRAMADOL [Interacting]
     Active Substance: TRAMADOL
     Dosage: STRENGTH : 50 MG
     Route: 065
  13. TRAMADOL [Interacting]
     Active Substance: TRAMADOL
     Dosage: 100 MILLIGRAM, ONCE A DAY
     Route: 065
  14. TRAMADOL [Interacting]
     Active Substance: TRAMADOL
     Dosage: ONCE A DAY,ADDITIONAL INFO: MEDICATION ERROR
     Route: 065
  15. TRAMADOL [Interacting]
     Active Substance: TRAMADOL
     Dosage: 100 MILLIGRAM, QD
     Route: 065
  16. TRAMADOL [Interacting]
     Active Substance: TRAMADOL
     Dosage: UNK
     Route: 065
  17. TRAMADOL [Interacting]
     Active Substance: TRAMADOL
     Dosage: UNK
     Route: 065
  18. TRAMADOL [Interacting]
     Active Substance: TRAMADOL
     Dosage: STRENGTH: 100 MG, DOSE 100
     Route: 065
  19. TRAMADOL [Interacting]
     Active Substance: TRAMADOL
     Dosage: 50 MILLIGRAM (STRENGTH: 100 MG, DOSE 50)
     Route: 065
  20. TRAMADOL [Interacting]
     Active Substance: TRAMADOL
     Dosage: 50 MILLIGRAM, QD
     Route: 065
  21. TRAMADOL [Interacting]
     Active Substance: TRAMADOL
     Dosage: 100 MILLIGRAM, QD
     Route: 065
  22. TRAMADOL [Interacting]
     Active Substance: TRAMADOL
     Dosage: UNK
     Route: 065
  23. TRAMADOL [Interacting]
     Active Substance: TRAMADOL
     Dosage: UNK
     Route: 065
  24. TRAMADOL [Interacting]
     Active Substance: TRAMADOL
     Dosage: 100 MILLIGRAM, MEDICATION ERROR
     Route: 065
  25. TRAMADOL [Interacting]
     Active Substance: TRAMADOL
     Indication: Product used for unknown indication
     Dosage: UNK
     Route: 065
  26. TRAMADOL [Interacting]
     Active Substance: TRAMADOL
     Dosage: 50 MILLIGRAM, QD (50 MG, QD)
     Route: 065
  27. TRAMADOL [Interacting]
     Active Substance: TRAMADOL
     Dosage: 100 MILLIGRAM, QD (100 MG, QD)
     Route: 065
  28. TRAMADOL [Interacting]
     Active Substance: TRAMADOL
     Dosage: 100 MG, QD (100 MILLIGRAM, ONCE A DAY)
     Route: 065
  29. TRAMADOL [Interacting]
     Active Substance: TRAMADOL
     Dosage: STRENGTH: 100 MG)
     Route: 065
  30. TRAMADOL [Interacting]
     Active Substance: TRAMADOL
     Dosage: (MEDICATION ERROR, MISUSE, STRENGTH: 100 MG)
     Route: 065
  31. TRAMADOL [Interacting]
     Active Substance: TRAMADOL
     Dosage: (MEDICATION ERROR, MISUSE STRENGTH: 100 MG)
     Route: 065
  32. BISOPROLOL [Interacting]
     Active Substance: BISOPROLOL
     Indication: Product used for unknown indication
     Dosage: UNK
     Route: 065
  33. BISOPROLOL [Interacting]
     Active Substance: BISOPROLOL
     Dosage: 2.5 MILLIGRAM, QD,
     Route: 065
  34. BISOPROLOL [Interacting]
     Active Substance: BISOPROLOL
     Dosage: 2.5 MILLIGRAM, QD (STRENGTH: 2.5 MG)
     Route: 065
  35. BISOPROLOL [Interacting]
     Active Substance: BISOPROLOL
     Dosage: 2.5 MILLIGRAM
     Route: 065
  36. BISOPROLOL [Interacting]
     Active Substance: BISOPROLOL
     Dosage: 2.5 MILLIGRAM, QD,
     Route: 065
  37. LANSOPRAZOLE [Interacting]
     Active Substance: LANSOPRAZOLE
     Indication: Gastrooesophageal reflux disease
     Dosage: 2.5 MILLIGRAM, QD (STRENGTH: 15 MG)
     Route: 065
  38. LANSOPRAZOLE [Interacting]
     Active Substance: LANSOPRAZOLE
     Dosage: UNK
     Route: 065
  39. LANSOPRAZOLE [Interacting]
     Active Substance: LANSOPRAZOLE
     Dosage: 15 MILLIGRAM, QD
     Route: 065
  40. LANSOPRAZOLE [Interacting]
     Active Substance: LANSOPRAZOLE
     Dosage: STRENGTH: 15 MG
     Route: 065
  41. LANSOPRAZOLE [Interacting]
     Active Substance: LANSOPRAZOLE
     Dosage: 15 MILLIGRAM, QD, 15 MG, QD
     Route: 065
  42. LANSOPRAZOLE [Interacting]
     Active Substance: LANSOPRAZOLE
     Dosage: 2.5 MILLIGRAM, QD (STRENGTH: 15 MG)
     Route: 065
  43. LANSOPRAZOLE [Interacting]
     Active Substance: LANSOPRAZOLE
     Dosage: 15 MILLIGRAM, QD
     Route: 065
  44. LANSOPRAZOLE [Interacting]
     Active Substance: LANSOPRAZOLE
     Dosage: 15 MILLIGRAM, QD,
     Route: 065
  45. LANSOPRAZOLE [Interacting]
     Active Substance: LANSOPRAZOLE
     Dosage: 15 MILLIGRAM
     Route: 065
  46. LANSOPRAZOLE [Interacting]
     Active Substance: LANSOPRAZOLE
     Dosage: 15 MILLIGRAM, QD (STRENGTH: 15 MG QD)
     Route: 065
  47. LANSOPRAZOLE [Interacting]
     Active Substance: LANSOPRAZOLE
     Dosage: 2.5 MILLIGRAM, QD
     Route: 065
  48. LANSOPRAZOLE [Interacting]
     Active Substance: LANSOPRAZOLE
     Indication: Gastrooesophageal reflux disease
     Dosage: 2.5 MILLIGRAM, QD
     Route: 065
  49. LANSOPRAZOLE [Interacting]
     Active Substance: LANSOPRAZOLE
     Dosage: 15 MILLIGRAM, QD
     Route: 065
  50. ALFUZOSIN [Interacting]
     Active Substance: ALFUZOSIN
     Indication: Product used for unknown indication
     Dosage: UNK
     Route: 065
  51. ALFUZOSIN [Interacting]
     Active Substance: ALFUZOSIN
     Dosage: 10 MILLIGRAM, QD (STRENGTH: 10 MG,  DAILY)
     Route: 065
  52. ALFUZOSIN [Interacting]
     Active Substance: ALFUZOSIN
     Dosage: 10 MILLIGRAM, QD (STRENGTH: 10 MG)
     Route: 065
  53. ALFUZOSIN [Interacting]
     Active Substance: ALFUZOSIN
     Dosage: 10 MILLIGRAM, QD ONCE A DAY 10 MG, DAILY
     Route: 065
  54. ALFUZOSIN [Interacting]
     Active Substance: ALFUZOSIN
     Dosage: 10 MILLIGRAM
     Route: 065
  55. ALFUZOSIN [Interacting]
     Active Substance: ALFUZOSIN
     Dosage: 10 MILLIGRAM, QD
     Route: 065
  56. ALFUZOSIN [Interacting]
     Active Substance: ALFUZOSIN
     Dosage: 1 DOSAGE FORM, QD (1 DF, QD)
     Route: 065
  57. ALFUZOSIN [Interacting]
     Active Substance: ALFUZOSIN
     Dosage: UNK, QD (STRENGTH: 10 MG)
     Route: 065
  58. ALFUZOSIN [Interacting]
     Active Substance: ALFUZOSIN
     Dosage: 10 MILLIGRAM, QD, 1 DF, QDSTRENGTH: 10 MG
     Route: 065
  59. VANCOMYCIN [Interacting]
     Active Substance: VANCOMYCIN
     Indication: Bacteraemia
     Dosage: OFF LABEL USE
     Route: 042
  60. VANCOMYCIN [Interacting]
     Active Substance: VANCOMYCIN
     Indication: Device related infection
     Dosage: DRUG TAKEN BEYOND EXPIRY DATE
     Route: 042
  61. VANCOMYCIN [Interacting]
     Active Substance: VANCOMYCIN
     Dosage: UNK
     Route: 042
  62. VANCOMYCIN [Interacting]
     Active Substance: VANCOMYCIN
     Dosage: UNK
     Route: 042
  63. VANCOMYCIN [Interacting]
     Active Substance: VANCOMYCIN
     Dosage: UNK
     Route: 042
  64. VANCOMYCIN [Interacting]
     Active Substance: VANCOMYCIN
     Dosage: UNK
     Route: 042
  65. VANCOMYCIN [Interacting]
     Active Substance: VANCOMYCIN
     Dosage: DRUG TAKEN BEYOND EXPIRY DATE
     Route: 042
  66. VANCOMYCIN [Interacting]
     Active Substance: VANCOMYCIN
     Dosage: OFF LABEL USE
     Route: 042
  67. LANSOPRAZOLE [Interacting]
     Active Substance: LANSOPRAZOLE
     Indication: Product used for unknown indication
     Dosage: 15 MILLIGRAM, QD
     Route: 065
  68. DAPTOMYCIN [Interacting]
     Active Substance: DAPTOMYCIN
     Indication: Bacteraemia
     Dosage: UNK
     Route: 042
  69. DAPTOMYCIN [Interacting]
     Active Substance: DAPTOMYCIN
     Indication: Device related infection
     Dosage: OFF LABEL USE
     Route: 042
  70. DAPTOMYCIN [Interacting]
     Active Substance: DAPTOMYCIN
     Dosage: UNK
     Route: 042
  71. DAPTOMYCIN [Interacting]
     Active Substance: DAPTOMYCIN
     Dosage: UNK
     Route: 042
  72. DAPTOMYCIN [Interacting]
     Active Substance: DAPTOMYCIN
     Dosage: UNK
     Route: 042
  73. DAPTOMYCIN [Interacting]
     Active Substance: DAPTOMYCIN
     Dosage: UNK
     Route: 042
  74. DAPTOMYCIN [Interacting]
     Active Substance: DAPTOMYCIN
     Dosage: UNK
     Route: 042
  75. ALFUZOSIN HYDROCHLORIDE [Interacting]
     Active Substance: ALFUZOSIN HYDROCHLORIDE
     Indication: Product used for unknown indication
     Dosage: 10 MILLIGRAM, QD
     Route: 065
  76. ALFUZOSIN HYDROCHLORIDE [Interacting]
     Active Substance: ALFUZOSIN HYDROCHLORIDE
     Dosage: 10 MILLIGRAM
     Route: 065
  77. ALFUZOSIN HYDROCHLORIDE [Interacting]
     Active Substance: ALFUZOSIN HYDROCHLORIDE
     Dosage: 10 MILLIGRAM (STRENGTH: 10 MG)
     Route: 065
  78. ALFUZOSIN HYDROCHLORIDE [Interacting]
     Active Substance: ALFUZOSIN HYDROCHLORIDE
     Dosage: 10 MILLIGRAM, QD
     Route: 065
  79. ALFUZOSIN HYDROCHLORIDE [Interacting]
     Active Substance: ALFUZOSIN HYDROCHLORIDE
     Dosage: 10 MILLIGRAM, QD
     Route: 065
  80. ALFUZOSIN HYDROCHLORIDE [Interacting]
     Active Substance: ALFUZOSIN HYDROCHLORIDE
     Dosage: 10 MILLIGRAM
     Route: 065
  81. ALFUZOSIN HYDROCHLORIDE [Interacting]
     Active Substance: ALFUZOSIN HYDROCHLORIDE
     Dosage: 1 DOSAGE FORM, QD
     Route: 065
  82. TRAMADOL HYDROCHLORIDE [Interacting]
     Active Substance: TRAMADOL HYDROCHLORIDE
     Indication: Product used for unknown indication
     Dosage: 100 MILLIGRAM, QD (STRENGTH: 50 MG, QD)
     Route: 065
  83. TRAMADOL HYDROCHLORIDE [Interacting]
     Active Substance: TRAMADOL HYDROCHLORIDE
     Dosage: 50 MILLIGRAM
     Route: 065
  84. TRAMADOL HYDROCHLORIDE [Interacting]
     Active Substance: TRAMADOL HYDROCHLORIDE
     Dosage: 50 MILLIGRAM, QD (STRENGTH: 50 MG, QD)
     Route: 065
  85. TRAMADOL HYDROCHLORIDE [Interacting]
     Active Substance: TRAMADOL HYDROCHLORIDE
     Dosage: QD, ONCE A DAY,ADDITIONAL INFO: MEDICATION ERROR
     Route: 065
  86. TRAMADOL HYDROCHLORIDE [Interacting]
     Active Substance: TRAMADOL HYDROCHLORIDE
     Dosage: UNK
     Route: 065
  87. TRAMADOL HYDROCHLORIDE [Interacting]
     Active Substance: TRAMADOL HYDROCHLORIDE
     Dosage: 50 MILLIGRAM
     Route: 065
  88. DAPTOMYCIN [Interacting]
     Active Substance: DAPTOMYCIN
     Indication: Device related infection
     Dosage: UNK
     Route: 042
  89. DAPTOMYCIN [Interacting]
     Active Substance: DAPTOMYCIN
     Indication: Bacteraemia
  90. BISOPROLOL FUMARATE [Interacting]
     Active Substance: BISOPROLOL FUMARATE
     Indication: Product used for unknown indication
     Dosage: 2.5 MILLIGRAM, QD
     Route: 065
  91. BISOPROLOL FUMARATE [Interacting]
     Active Substance: BISOPROLOL FUMARATE
     Dosage: 2.5 MILLIGRAM, STRENGTH: 2.5 MG,
     Route: 065
  92. LINEZOLID [Concomitant]
     Active Substance: LINEZOLID
     Dosage: UNK
     Route: 065

REACTIONS (18)
  - Malaise [Unknown]
  - Lower respiratory tract infection [Unknown]
  - Antimicrobial susceptibility test resistant [Unknown]
  - Minimum inhibitory concentration increased [Unknown]
  - Minimum inhibitory concentration [Unknown]
  - Product administration error [Unknown]
  - Product dispensing error [Unknown]
  - Product storage error [Unknown]
  - Drug dispensed to wrong patient [Unknown]
  - Wrong patient received product [Unknown]
  - Wrong product administered [Unknown]
  - Drug ineffective for unapproved indication [Unknown]
  - Therapeutic response delayed [Unknown]
  - Therapy non-responder [Unknown]
  - Expired product administered [Unknown]
  - Off label use [Unknown]
  - Intentional product misuse [Unknown]
  - Drug interaction [Unknown]
